FAERS Safety Report 11270434 (Version 1)
Quarter: 2015Q3

REPORT INFORMATION
  Report Type: Spontaneous
  Country: US (occurrence: US)
  Receive Date: 20150714
  Receipt Date: 20150714
  Transmission Date: 20151125
  Serious: No
  Sender: FDA-Public Use
  Company Number: US-009507513-1507USA000274

PATIENT
  Age: 81 Year
  Sex: Female

DRUGS (2)
  1. CARBIDOPA. [Concomitant]
     Active Substance: CARBIDOPA
  2. INVANZ [Suspect]
     Active Substance: ERTAPENEM SODIUM
     Indication: DIABETIC FOOT INFECTION
     Dosage: 1 G, QD
     Dates: start: 2014

REACTIONS (2)
  - Myoclonus [Unknown]
  - Confusional state [Unknown]

NARRATIVE: CASE EVENT DATE: 201411
